FAERS Safety Report 23932538 (Version 2)
Quarter: 2024Q3

REPORT INFORMATION
  Report Type: Spontaneous
  Country: MY (occurrence: MY)
  Receive Date: 20240603
  Receipt Date: 20240918
  Transmission Date: 20241016
  Serious: No
  Sender: MYLAN
  Company Number: MY-MYLANLABS-2024M1049990

PATIENT
  Age: 3 Month
  Sex: Female

DRUGS (2)
  1. PHENYTOIN [Suspect]
     Active Substance: PHENYTOIN
     Indication: Epilepsy of infancy with migrating focal seizures
     Dosage: 15 MILLIGRAM/KILOGRAM, QD
     Route: 065
  2. LEVETIRACETAM [Concomitant]
     Active Substance: LEVETIRACETAM
     Indication: Epilepsy of infancy with migrating focal seizures
     Dosage: 40 MILLIGRAM/KILOGRAM, QD
     Route: 065

REACTIONS (2)
  - Drug ineffective [Unknown]
  - No adverse event [Recovered/Resolved]
